FAERS Safety Report 17527755 (Version 2)
Quarter: 2020Q2

REPORT INFORMATION
  Report Type: Spontaneous
  Country: US (occurrence: US)
  Receive Date: 20200311
  Receipt Date: 20200421
  Transmission Date: 20200713
  Serious: Yes (Hospitalization)
  Sender: FDA-Public Use
  Company Number: US-VERTEX PHARMACEUTICALS-2020-004702

PATIENT
  Age: 28 Year
  Sex: Male
  Weight: 83 kg

DRUGS (1)
  1. TRIKAFTA [Suspect]
     Active Substance: ELEXACAFTOR\IVACAFTOR\TEZACAFTOR
     Indication: CYSTIC FIBROSIS
     Dosage: FULL DOSE
     Route: 048
     Dates: start: 201912

REACTIONS (1)
  - Haemorrhoids [Unknown]

NARRATIVE: CASE EVENT DATE: 20200201
